FAERS Safety Report 21093959 (Version 1)
Quarter: 2022Q3

REPORT INFORMATION
  Report Type: Report from Study
  Country: CO (occurrence: CO)
  Receive Date: 20220718
  Receipt Date: 20220718
  Transmission Date: 20221027
  Serious: Yes (Other)
  Sender: FDA-Public Use
  Company Number: CO-ABBVIE-22K-036-4469144-00

PATIENT
  Age: 54 Year
  Sex: Female

DRUGS (2)
  1. ZEMPLAR [Suspect]
     Active Substance: PARICALCITOL
     Indication: Hyperparathyroidism secondary
     Route: 042
     Dates: start: 20201009, end: 20220622
  2. ZEMPLAR [Suspect]
     Active Substance: PARICALCITOL
     Indication: Nephropathy

REACTIONS (2)
  - Catheter placement [Unknown]
  - Malaise [Unknown]

NARRATIVE: CASE EVENT DATE: 20220711
